FAERS Safety Report 21957288 (Version 2)
Quarter: 2023Q1

REPORT INFORMATION
  Report Type: Spontaneous
  Country: US (occurrence: US)
  Receive Date: 20230206
  Receipt Date: 20230310
  Transmission Date: 20230418
  Serious: Yes (Hospitalization, Other)
  Sender: FDA-Public Use
  Company Number: US-009507513-2302USA000338

PATIENT
  Age: 63 Year
  Sex: Male

DRUGS (4)
  1. KEYTRUDA [Suspect]
     Active Substance: PEMBROLIZUMAB
     Indication: Neoplasm malignant
     Dosage: UNK
  2. KEYTRUDA [Suspect]
     Active Substance: PEMBROLIZUMAB
     Indication: Bladder cancer
  3. KEYTRUDA [Suspect]
     Active Substance: PEMBROLIZUMAB
     Indication: Prostate cancer
  4. CISPLATIN;GEMCITABINE [Concomitant]
     Dosage: UNK

REACTIONS (4)
  - Acute respiratory failure [Recovered/Resolved]
  - Blood 1,25-dihydroxycholecalciferol increased [Unknown]
  - Hypercalcaemia [Recovered/Resolved]
  - Immune-mediated lung disease [Unknown]
